FAERS Safety Report 11707220 (Version 1)
Quarter: 2015Q4

REPORT INFORMATION
  Report Type: Spontaneous
  Country: US (occurrence: US)
  Receive Date: 20151104
  Receipt Date: 20151104
  Transmission Date: 20160304
  Serious: No
  Sender: FDA-Public Use
  Company Number: US-ELI_LILLY_AND_COMPANY-US201101003138

PATIENT
  Age: 69 Year
  Sex: Female

DRUGS (1)
  1. FORTEO [Suspect]
     Active Substance: TERIPARATIDE

REACTIONS (5)
  - Injection site bruising [Recovering/Resolving]
  - Drug dose omission [Unknown]
  - Contusion [Recovering/Resolving]
  - Influenza like illness [Recovering/Resolving]
  - Pain [Recovering/Resolving]
